FAERS Safety Report 15482070 (Version 2)
Quarter: 2018Q4

REPORT INFORMATION
  Report Type: Report from Study
  Country: US (occurrence: US)
  Receive Date: 20181010
  Receipt Date: 20181017
  Transmission Date: 20190205
  Serious: Yes (Other)
  Sender: FDA-Public Use
  Company Number: US-INCYTE CORPORATION-2018IN009121

PATIENT

DRUGS (2)
  1. JAKAFI [Suspect]
     Active Substance: RUXOLITINIB
     Indication: POLYCYTHAEMIA VERA
     Route: 065
  2. GLEEVEC [Suspect]
     Active Substance: IMATINIB MESYLATE
     Indication: LEUKAEMIA
     Dosage: UNK
     Route: 065
     Dates: start: 201803

REACTIONS (11)
  - Leukaemia [Unknown]
  - Decreased activity [Unknown]
  - Haemoglobin decreased [Unknown]
  - Fatigue [Unknown]
  - Red blood cell count increased [Unknown]
  - Splenomegaly [Unknown]
  - Feeling cold [Unknown]
  - Weight increased [Unknown]
  - Asthenia [Unknown]
  - Myelofibrosis [Unknown]
  - Therapeutic response unexpected [Unknown]
